FAERS Safety Report 19020140 (Version 1)
Quarter: 2021Q1

REPORT INFORMATION
  Report Type: Spontaneous
  Country: US (occurrence: US)
  Receive Date: 20210317
  Receipt Date: 20210317
  Transmission Date: 20210420
  Serious: Yes (Disabling, Other)
  Sender: FDA-Public Use
  Company Number: US-PURDUE-USA-2020-0170082

PATIENT
  Sex: Male

DRUGS (5)
  1. OXYCONTIN [Suspect]
     Active Substance: OXYCODONE HYDROCHLORIDE
     Indication: ARTHRALGIA
     Dosage: 10 MG, Q8H
     Route: 048
  2. OXYCODONE HYDROCHLORIDE (SIMILAR TO NDA 22?272) [Suspect]
     Active Substance: OXYCODONE HYDROCHLORIDE
     Indication: PENILE PAIN
     Dosage: 15 MG, Q8H
     Route: 048
  3. OXYCONTIN [Suspect]
     Active Substance: OXYCODONE HYDROCHLORIDE
     Indication: DEPRESSION
  4. OXYCONTIN [Suspect]
     Active Substance: OXYCODONE HYDROCHLORIDE
     Indication: PENILE PAIN
     Dosage: 15 MG, Q8H
     Route: 048
  5. OXYCODONE HYDROCHLORIDE (SIMILAR TO NDA 22?272) [Suspect]
     Active Substance: OXYCODONE HYDROCHLORIDE
     Dosage: 10 MG, Q8H
     Route: 048

REACTIONS (21)
  - Night sweats [Unknown]
  - Bedridden [Unknown]
  - Pruritus [Unknown]
  - Depression [Unknown]
  - Rash [Unknown]
  - Prostatic operation [Unknown]
  - Urinary retention [Unknown]
  - Anal incontinence [Unknown]
  - Reading disorder [Unknown]
  - Decreased appetite [Unknown]
  - Amnesia [Unknown]
  - Disability [Unknown]
  - Tooth loss [Unknown]
  - Drug dependence [Unknown]
  - Nocturia [Unknown]
  - Balance disorder [Unknown]
  - Urinary incontinence [Unknown]
  - Impaired work ability [Unknown]
  - Aphasia [Unknown]
  - Agraphia [Unknown]
  - Dehydration [Unknown]
